FAERS Safety Report 10237396 (Version 1)
Quarter: 2014Q2

REPORT INFORMATION
  Report Type: Report from Study
  Country: US (occurrence: US)
  Receive Date: 20140614
  Receipt Date: 20140614
  Transmission Date: 20141212
  Serious: Yes (Other)
  Sender: FDA-Public Use
  Company Number: US-ABBVIE-14P-163-1246210-00

PATIENT
  Age: 21 Year
  Sex: Female
  Weight: 63.11 kg

DRUGS (3)
  1. LUPRON DEPOT [Suspect]
     Indication: ENDOMETRIOSIS
     Dates: start: 201004, end: 201009
  2. MEFENAMIC ACID [Suspect]
     Indication: PAIN
     Route: 048
     Dates: start: 201109
  3. MEFENAMIC ACID [Suspect]
     Indication: CONTRACEPTION

REACTIONS (5)
  - Pelvic pain [Not Recovered/Not Resolved]
  - Back pain [Not Recovered/Not Resolved]
  - Abdominal distension [Not Recovered/Not Resolved]
  - Drug ineffective [Unknown]
  - Wisdom teeth removal [Unknown]
